FAERS Safety Report 8296241-6 (Version None)
Quarter: 2012Q2

REPORT INFORMATION
  Report Type: 
  Country: None (occurrence: None)
  Receive Date: 20120418
  Receipt Date: 20120410
  Transmission Date: 20120825
  Serious: Yes (Other)
  Sender: FDA-Public Use
  Company Number: CHPA2012US003297

PATIENT
  Sex: Male

DRUGS (3)
  1. NICOTINE [Suspect]
     Indication: SMOKING CESSATION THERAPY
     Dosage: 14 MG, QD
  2. NICOTINE [Suspect]
     Dosage: 7 MG, QD
     Route: 062
  3. NICOTINE [Suspect]
     Dosage: 21 MG, QD
     Route: 062

REACTIONS (6)
  - METASTATIC MALIGNANT MELANOMA [None]
  - PAIN [None]
  - NIGHTMARE [None]
  - SKIN IRRITATION [None]
  - PRODUCT QUALITY ISSUE [None]
  - MALIGNANT MELANOMA [None]
